FAERS Safety Report 8958906 (Version 1)
Quarter: 2012Q4

REPORT INFORMATION
  Report Type: 
  Country: NL (occurrence: NL)
  Receive Date: 20121212
  Receipt Date: 20121212
  Transmission Date: 20130627
  Serious: Yes (Disabling, Other)
  Sender: FDA-Public Use
  Company Number: NL-ROCHE-1161291

PATIENT
  Age: 85 Year
  Sex: Male

DRUGS (9)
  1. LUCENTIS [Suspect]
     Indication: MACULAR DEGENERATION
     Route: 050
     Dates: start: 20100712
  2. LUCENTIS [Suspect]
     Route: 050
     Dates: start: 20121119, end: 20121119
  3. FLUTICASONE PROPIONATE/SALMETEROL [Concomitant]
  4. CITALOPRAM [Concomitant]
  5. PANTOPRAZOLE [Concomitant]
  6. LISINOPRIL [Concomitant]
  7. PARACETAMOL [Concomitant]
  8. TRAMADOL [Concomitant]
  9. SIMVASTATIN [Concomitant]

REACTIONS (3)
  - Endophthalmitis [Not Recovered/Not Resolved]
  - Wrong technique in drug usage process [Unknown]
  - Suspected transmission of an infectious agent via product [Unknown]
